FAERS Safety Report 23755738 (Version 1)
Quarter: 2024Q2

REPORT INFORMATION
  Report Type: Spontaneous
  Country: US (occurrence: US)
  Receive Date: 20240418
  Receipt Date: 20240418
  Transmission Date: 20240715
  Serious: Yes (Hospitalization, Other)
  Sender: FDA-Public Use
  Company Number: US-HALEON-2167553

PATIENT
  Age: 14 Year
  Sex: Male
  Weight: 93.712 kg

DRUGS (4)
  1. ADVIL PM (DIPHENHYDRAMINE CITRATE\IBUPROFEN) [Suspect]
     Active Substance: DIPHENHYDRAMINE CITRATE\IBUPROFEN
     Indication: Intentional overdose
     Dosage: HANDFUL OF PRODUCT ADMINISTERED
     Route: 048
     Dates: start: 20221129, end: 20221129
  2. VENTOLIN [Concomitant]
     Active Substance: ALBUTEROL SULFATE
     Indication: Asthma
     Dosage: AS NEEDED
     Route: 055
     Dates: start: 20180818
  3. influenza virus vaccine, inactivated (influenza virus vaccine, inac... [Concomitant]
     Indication: Immunisation
     Route: 030
  4. MELATONIN [Concomitant]
     Active Substance: MELATONIN
     Indication: Insomnia
     Dosage: AT BEDTIME
     Route: 048

REACTIONS (5)
  - Acute kidney injury [Recovering/Resolving]
  - Intentional overdose [Recovered/Resolved]
  - Drug abuse [Unknown]
  - Mental status changes [Recovered/Resolved]
  - Agitation [Recovered/Resolved]

NARRATIVE: CASE EVENT DATE: 20220101
